FAERS Safety Report 5206809-9 (Version None)
Quarter: 2006Q4

REPORT INFORMATION
  Report Type: 
  Country: None (occurrence: None)
  Receive Date: 20061026
  Receipt Date: 20060712
  Transmission Date: 20070319
  Serious: No
  Sender: FDA-Public Use
  Company Number: 2006092382

PATIENT
  Age: 67 Year
  Sex: Female
  Weight: 47.6277 kg

DRUGS (6)
  1. LYRICA [Suspect]
     Indication: HERPES ZOSTER
     Dosage: 150 MG (75 MG, 2 IN 1 D)
     Dates: start: 20060711, end: 20060711
  2. VALTREX [Concomitant]
  3. ESTRACE [Concomitant]
  4. MULTI-VITAMINS [Concomitant]
  5. ATENOLOL [Concomitant]
  6. EXCEDRIN P.M. (DIPHENHYDRAMINE CITRATE, PARACETAMOL) [Concomitant]

REACTIONS (6)
  - DIZZINESS [None]
  - DYSPNOEA [None]
  - FEELING ABNORMAL [None]
  - HEADACHE [None]
  - SOMNOLENCE [None]
  - THINKING ABNORMAL [None]
